FAERS Safety Report 8209860-X (Version None)
Quarter: 2012Q1

REPORT INFORMATION
  Report Type: 
  Country: None (occurrence: None)
  Receive Date: 20120314
  Receipt Date: 20120306
  Transmission Date: 20120608
  Serious: Yes (Death, Congenital Anomaly)
  Sender: FDA-Public Use
  Company Number: US-FRI-1000028975

PATIENT
  Sex: Female

DRUGS (1)
  1. CELEXA [Suspect]
     Route: 064
     Dates: end: 20100218

REACTIONS (1)
  - DIAPHRAGMATIC HERNIA [None]
